FAERS Safety Report 6694078-2 (Version None)
Quarter: 2010Q2

REPORT INFORMATION
  Report Type: 
  Country: None (occurrence: None)
  Receive Date: 20100423
  Receipt Date: 20100414
  Transmission Date: 20101027
  Serious: Yes (Death)
  Sender: FDA-Public Use
  Company Number: CO-MILLENNIUM PHARMACEUTICALS, INC.-2010-02180

PATIENT

DRUGS (3)
  1. VELCADE [Suspect]
     Indication: MULTIPLE MYELOMA
     Dosage: 1.3 MG/M2, UNK
     Route: 065
  2. IBANDRONATE SODIUM [Concomitant]
  3. DEXAMETHASONE [Concomitant]
     Dosage: 40 MG, UNK

REACTIONS (1)
  - DEATH [None]
